FAERS Safety Report 17386458 (Version 3)
Quarter: 2020Q1

REPORT INFORMATION
  Report Type: Spontaneous
  Country: US (occurrence: US)
  Receive Date: 20200206
  Receipt Date: 20200316
  Transmission Date: 20200409
  Serious: No
  Sender: FDA-Public Use
  Company Number: US-BIOMARINAP-US-2020-128033

PATIENT
  Age: 26 Year
  Sex: Female
  Weight: 20.02 kg

DRUGS (1)
  1. VIMIZIM [Suspect]
     Active Substance: ELOSULFASE ALFA
     Indication: MUCOPOLYSACCHARIDOSIS IV
     Dosage: 40 MILLIGRAM, QW
     Route: 042
     Dates: start: 20140701

REACTIONS (4)
  - Pyrexia [Unknown]
  - Product dose omission [Unknown]
  - Influenza [Unknown]
  - Malaise [Unknown]
